FAERS Safety Report 5379941-7 (Version None)
Quarter: 2007Q3

REPORT INFORMATION
  Report Type: 
  Country: None (occurrence: None)
  Receive Date: 20070706
  Receipt Date: 20070625
  Transmission Date: 20080115
  Serious: Yes (Other)
  Sender: FDA-Public Use
  Company Number: GB-NOVOPROD-264595

PATIENT
  Age: 57 Year
  Sex: Female
  Weight: 113.6 kg

DRUGS (10)
  1. NOVORAPID [Suspect]
     Indication: INSULIN-REQUIRING TYPE II DIABETES MELLITUS
     Dosage: 12 IU, QD
     Route: 058
     Dates: start: 20070615, end: 20070618
  2. LANTUS [Concomitant]
     Dosage: 46 IU, QD
     Route: 058
     Dates: start: 20060601
  3. DOTHIEPIN                          /00160401/ [Concomitant]
     Dosage: 75 MG, QD
     Route: 048
  4. FRUSEMIDE                          /00032601/ [Concomitant]
     Dosage: 20 MG, QD
     Route: 048
  5. SIMVASTATIN [Concomitant]
     Dosage: 40 MG, QD
     Route: 048
  6. CLOPIDOGREL [Concomitant]
     Dosage: 75 MG, QD
     Route: 048
  7. ISOSORBIDE MONONITRATE [Concomitant]
     Dosage: 30 MG, QD
     Route: 048
  8. NICORANDIL [Concomitant]
     Dosage: 40 MG, QD
     Route: 048
  9. OMEPRAZOLE [Concomitant]
     Dosage: 10 MG, QD
     Route: 048
  10. LISINOPRIL [Concomitant]
     Dosage: 15 MG, QD
     Route: 048

REACTIONS (2)
  - PALPITATIONS [None]
  - PARAESTHESIA ORAL [None]
